FAERS Safety Report 16483235 (Version 2)
Quarter: 2022Q1

REPORT INFORMATION
  Report Type: Report from Study
  Country: CA (occurrence: CA)
  Receive Date: 20190627
  Receipt Date: 20220224
  Transmission Date: 20220423
  Serious: Yes (Hospitalization, Other)
  Sender: FDA-Public Use
  Company Number: CA-PFIZER INC-2019272390

PATIENT
  Age: 65 Year
  Sex: Female
  Weight: 56 kg

DRUGS (28)
  1. METHOTREXATE SODIUM [Suspect]
     Active Substance: METHOTREXATE SODIUM
     Indication: Sjogren^s syndrome
     Dosage: 15 MG, UNK
     Route: 058
  2. METHOTREXATE SODIUM [Suspect]
     Active Substance: METHOTREXATE SODIUM
     Indication: Rheumatoid arthritis
  3. CIPRO [Suspect]
     Active Substance: CIPROFLOXACIN HYDROCHLORIDE
     Indication: Pyelonephritis
     Dosage: 250 MG, 2X/DAY
     Route: 065
  4. RITUXAN [Suspect]
     Active Substance: RITUXIMAB
     Indication: Sjogren^s syndrome
     Dosage: 1000 MG, UNK
     Route: 042
  5. CIPROFLOXACIN [Suspect]
     Active Substance: CIPROFLOXACIN
     Indication: Pyelonephritis
     Dosage: 250 MG, 2X/DAY
     Route: 005
  6. RITUXIMAB [Suspect]
     Active Substance: RITUXIMAB
     Indication: Vasculitis
     Dosage: 1000 MG
     Route: 042
  7. RITUXIMAB [Suspect]
     Active Substance: RITUXIMAB
     Indication: Sjogren^s syndrome
  8. ACETAMINOPHEN [Concomitant]
     Active Substance: ACETAMINOPHEN
     Indication: Premedication
     Dosage: 650 MG, UNK
     Route: 048
  9. ACETAMINOPHEN [Concomitant]
     Active Substance: ACETAMINOPHEN
     Dosage: 650 MG
     Route: 048
  10. DETROL [Concomitant]
     Active Substance: TOLTERODINE TARTRATE
     Dosage: UNK
  11. DIPHENHYDRAMINE HYDROCHLORIDE [Concomitant]
     Active Substance: DIPHENHYDRAMINE HYDROCHLORIDE
     Indication: Premedication
     Dosage: 50 MG, UNK
     Route: 048
  12. HYDROXYCHLOROQUINE SULFATE [Concomitant]
     Active Substance: HYDROXYCHLOROQUINE SULFATE
     Dosage: UNK
  13. IMURAN [Concomitant]
     Active Substance: AZATHIOPRINE
     Dosage: UNK
  14. METHYLPREDNISOLONE [Concomitant]
     Active Substance: METHYLPREDNISOLONE
     Indication: Premedication
     Dosage: 100 MG, UNK
     Route: 042
  15. NIFEDIPINE [Concomitant]
     Active Substance: NIFEDIPINE
     Indication: Blood pressure measurement
     Dosage: UNK
  16. PILOCARPINE HYDROCHLORIDE [Concomitant]
     Active Substance: PILOCARPINE HYDROCHLORIDE
     Dosage: UNK
  17. PREDNISONE [Concomitant]
     Active Substance: PREDNISONE
     Dosage: UNK
  18. RESTASIS [Concomitant]
     Active Substance: CYCLOSPORINE
     Dosage: UNK
  19. RISEDRONATE SODIUM [Concomitant]
     Active Substance: RISEDRONATE SODIUM
     Dosage: UNK
  20. CARBOXYMETHYLCELLULOSE SODIUM [Concomitant]
     Active Substance: CARBOXYMETHYLCELLULOSE SODIUM
     Dosage: UNK
  21. SYSTANE (HYPROMELLOSE 2910 (4000 MPA.S)) [Concomitant]
     Active Substance: HYPROMELLOSE 2910 (4000 MPA.S)
     Dosage: UNK
  22. AZATHIOPRINE [Concomitant]
     Active Substance: AZATHIOPRINE
     Dosage: UNK
  23. CALCIUM [Concomitant]
     Active Substance: CALCIUM
     Dosage: UNK
  24. HYDROXYCHLOROQUINE [Concomitant]
     Active Substance: HYDROXYCHLOROQUINE
     Dosage: UNK
  25. LANOLIN;MINERAL OIL;PETROLATUM [Concomitant]
     Dosage: UNK
  26. POLYETHYLENE GLYCOL 400\PROPYLENE GLYCOL [Concomitant]
     Active Substance: POLYETHYLENE GLYCOL 400\PROPYLENE GLYCOL
     Dosage: UNK
  27. RISEDRONATE SODIUM [Concomitant]
     Active Substance: RISEDRONATE SODIUM
  28. SALAGEN [Concomitant]
     Active Substance: PILOCARPINE HYDROCHLORIDE

REACTIONS (28)
  - Acne [Not Recovered/Not Resolved]
  - Blood pressure diastolic abnormal [Not Recovered/Not Resolved]
  - Blood pressure systolic decreased [Not Recovered/Not Resolved]
  - Body temperature fluctuation [Not Recovered/Not Resolved]
  - Drug ineffective [Not Recovered/Not Resolved]
  - Dyspnoea [Not Recovered/Not Resolved]
  - Escherichia urinary tract infection [Not Recovered/Not Resolved]
  - Fatigue [Not Recovered/Not Resolved]
  - Gait disturbance [Not Recovered/Not Resolved]
  - Heart rate decreased [Not Recovered/Not Resolved]
  - Hypoaesthesia [Not Recovered/Not Resolved]
  - Hypotension [Not Recovered/Not Resolved]
  - Infusion related reaction [Not Recovered/Not Resolved]
  - Musculoskeletal chest pain [Not Recovered/Not Resolved]
  - Myalgia [Not Recovered/Not Resolved]
  - Nausea [Not Recovered/Not Resolved]
  - Off label use [Not Recovered/Not Resolved]
  - Pyelonephritis [Not Recovered/Not Resolved]
  - Urinary tract infection [Not Recovered/Not Resolved]
  - Vasculitis [Not Recovered/Not Resolved]
  - Arthropathy [Not Recovered/Not Resolved]
  - Blood pressure diastolic decreased [Not Recovered/Not Resolved]
  - Blood pressure fluctuation [Not Recovered/Not Resolved]
  - Blood pressure systolic abnormal [Not Recovered/Not Resolved]
  - Body temperature decreased [Not Recovered/Not Resolved]
  - Discomfort [Not Recovered/Not Resolved]
  - Dizziness [Not Recovered/Not Resolved]
  - Skin disorder [Not Recovered/Not Resolved]
